FAERS Safety Report 5203995-1 (Version None)
Quarter: 2007Q1

REPORT INFORMATION
  Report Type: 
  Country: None (occurrence: None)
  Receive Date: 20070105
  Receipt Date: 20061222
  Transmission Date: 20070707
  Serious: Yes (Hospitalization)
  Sender: FDA-Public Use
  Company Number: 2006P1000583

PATIENT
  Age: 69 Year
  Sex: Female
  Weight: 70 kg

DRUGS (9)
  1. RETEPLASE (RETEPLASE) [Suspect]
     Indication: ACUTE MYOCARDIAL INFARCTION
     Dosage: IV
     Route: 042
     Dates: start: 20061102, end: 20061102
  2. ABCIXIMAB (ABCIXIMAB) [Suspect]
     Indication: ACUTE MYOCARDIAL INFARCTION
     Dosage: IV
     Route: 042
     Dates: start: 20061102, end: 20061102
  3. FLUVASTATIN [Concomitant]
  4. METOPROLOL SUCCINATE [Concomitant]
  5. ASPIRIN [Concomitant]
  6. ISOSORBIDE MONONITRATE [Concomitant]
  7. BENAZEPRIL HYDROCHLORIDE [Concomitant]
  8. CLOPIDOGREL [Concomitant]
  9. ACENOCOUMAROL [Concomitant]

REACTIONS (9)
  - BLOOD CREATINE INCREASED [None]
  - BLOOD UREA INCREASED [None]
  - CHOLECYSTECTOMY [None]
  - COLON CANCER [None]
  - GASTROINTESTINAL HAEMORRHAGE [None]
  - HAEMATOCRIT DECREASED [None]
  - HAEMOGLOBIN DECREASED [None]
  - PLATELET COUNT INCREASED [None]
  - SPLENECTOMY [None]
